FAERS Safety Report 10086207 (Version 1)
Quarter: 2014Q2

REPORT INFORMATION
  Report Type: Spontaneous
  Country: AU (occurrence: AU)
  Receive Date: 20140418
  Receipt Date: 20140418
  Transmission Date: 20141212
  Serious: Yes (Hospitalization)
  Sender: FDA-Public Use
  Company Number: AU-JNJFOC-20140408847

PATIENT
  Age: 0 Year
  Sex: Female
  Weight: 2.32 kg

DRUGS (5)
  1. REMICADE [Suspect]
     Indication: CROHN^S DISEASE
     Route: 064
     Dates: start: 2012
  2. LABETALOL [Suspect]
     Indication: GESTATIONAL HYPERTENSION
     Route: 064
     Dates: start: 20140105, end: 20140126
  3. EPIDURAL ANESTHESIA [Suspect]
     Indication: NORMAL LABOUR
     Route: 064
     Dates: start: 20140105
  4. OXYTOCIN [Suspect]
     Indication: NORMAL LABOUR
     Route: 064
     Dates: start: 20140105
  5. ZOFRAN [Suspect]
     Indication: PRODUCT USED FOR UNKNOWN INDICATION
     Route: 065

REACTIONS (5)
  - Foetal exposure during pregnancy [Recovered/Resolved]
  - Premature baby [Unknown]
  - Developmental delay [Unknown]
  - Low birth weight baby [Unknown]
  - Feeding disorder neonatal [Unknown]
